FAERS Safety Report 20094684 (Version 1)
Quarter: 2021Q4

REPORT INFORMATION
  Report Type: Report from Study
  Country: US (occurrence: US)
  Receive Date: 20211122
  Receipt Date: 20211122
  Transmission Date: 20220303
  Serious: No
  Sender: FDA-Public Use
  Company Number: US-Ipsen Biopharmaceuticals, Inc.-2021-28927

PATIENT
  Age: 64 Year
  Sex: Female

DRUGS (2)
  1. SOMATULINE DEPOT [Suspect]
     Active Substance: LANREOTIDE ACETATE
     Indication: Metastases to liver
     Route: 058
     Dates: start: 202003
  2. SOMATULINE DEPOT [Suspect]
     Active Substance: LANREOTIDE ACETATE
     Indication: Cholangiocarcinoma

REACTIONS (1)
  - Blood glucose fluctuation [Recovering/Resolving]

NARRATIVE: CASE EVENT DATE: 20211001
